FAERS Safety Report 22270646 (Version 1)
Quarter: 2023Q2

REPORT INFORMATION
  Report Type: Spontaneous
  Country: US (occurrence: None)
  Receive Date: 20230430
  Receipt Date: 20230430
  Transmission Date: 20230722
  Serious: Yes (Other)
  Sender: FDA-Public Use
  Company Number: None

PATIENT
  Age: 28 Year
  Sex: Female
  Weight: 54 kg

DRUGS (4)
  1. LATISSE [Suspect]
     Active Substance: BIMATOPROST
     Dates: end: 20230430
  2. SPIRONOLACTONE [Concomitant]
     Active Substance: SPIRONOLACTONE
  3. Lutera birth control [Concomitant]
  4. Ritual Daily Women^s Vitamins [Concomitant]

REACTIONS (1)
  - Meibomian gland dysfunction [None]

NARRATIVE: CASE EVENT DATE: 20220430
